FAERS Safety Report 19885562 (Version 1)
Quarter: 2021Q3

REPORT INFORMATION
  Report Type: Spontaneous
  Country: US (occurrence: US)
  Receive Date: 20210927
  Receipt Date: 20210927
  Transmission Date: 20211014
  Serious: No
  Sender: FDA-Public Use
  Company Number: US-MELINTA THERAPEUTICS, LLC-US-MLNT-21-00043

PATIENT
  Age: 48 Year
  Sex: Male

DRUGS (2)
  1. ORBACTIV [Suspect]
     Active Substance: ORITAVANCIN
     Indication: OSTEOMYELITIS
     Dosage: NOT PROVIDED.
     Route: 041
     Dates: start: 20210409, end: 20210409
  2. ORBACTIV [Suspect]
     Active Substance: ORITAVANCIN
     Dosage: PREPARED: 1200MG IN 1000ML DEXTROSE;?RECEIVED: AROUND 200 TO 250ML
     Route: 041
     Dates: start: 20210419, end: 20210419

REACTIONS (6)
  - Pruritus [Recovered/Resolved]
  - Pallor [Recovered/Resolved]
  - Off label use [Recovered/Resolved]
  - Back pain [Recovered/Resolved]
  - Nausea [Recovered/Resolved]
  - Tremor [Recovered/Resolved]

NARRATIVE: CASE EVENT DATE: 20210409
